FAERS Safety Report 16007161 (Version 3)
Quarter: 2019Q2

REPORT INFORMATION
  Report Type: Report from Study
  Country: US (occurrence: US)
  Receive Date: 20190226
  Receipt Date: 20190419
  Transmission Date: 20190711
  Serious: Yes (Life-Threatening, Hospitalization)
  Sender: FDA-Public Use
  Company Number: US-BIOMARINAP-US-2019-122046

PATIENT
  Age: 21 Year
  Sex: Male
  Weight: 88 kg

DRUGS (1)
  1. KUVAN [Suspect]
     Active Substance: SAPROPTERIN DIHYDROCHLORIDE
     Indication: PHENYLKETONURIA
     Dosage: 21 MILLIGRAM/KILOGRAM, QD
     Route: 048
     Dates: start: 20080730

REACTIONS (1)
  - Multiple injuries [Recovered/Resolved with Sequelae]

NARRATIVE: CASE EVENT DATE: 20181206
